FAERS Safety Report 18329445 (Version 1)
Quarter: 2020Q3

REPORT INFORMATION
  Report Type: Spontaneous
  Country: US (occurrence: US)
  Receive Date: 20200930
  Receipt Date: 20200930
  Transmission Date: 20201103
  Serious: Yes (Death, Other)
  Sender: FDA-Public Use
  Company Number: US-MSNLABS-2020MSNLIT00369

PATIENT
  Age: 77 Year
  Sex: Male

DRUGS (2)
  1. DECITABINE FOR INJECTION 50 MG [Suspect]
     Active Substance: DECITABINE
     Indication: MYELOPROLIFERATIVE NEOPLASM
     Dosage: 20 MG/M2 (DAYS 1?5) 5 CYCLES
     Route: 065
  2. VENETOCLAX. [Suspect]
     Active Substance: VENETOCLAX
     Indication: MYELOPROLIFERATIVE NEOPLASM
     Dosage: UNKNOWN
     Route: 065

REACTIONS (2)
  - Death [Fatal]
  - Therapy partial responder [Unknown]
